FAERS Safety Report 19659134 (Version 3)
Quarter: 2021Q4

REPORT INFORMATION
  Report Type: Report from Study
  Country: None (occurrence: CA)
  Receive Date: 20210805
  Receipt Date: 20211011
  Transmission Date: 20220303
  Serious: Yes (Other)
  Sender: FDA-Public Use
  Company Number: CA-ABBVIE-21K-028-4019191-00

PATIENT
  Age: 71 Year
  Sex: Female

DRUGS (3)
  1. HUMIRA [Suspect]
     Active Substance: ADALIMUMAB
     Indication: Crohn^s disease
     Route: 058
  2. HUMIRA [Suspect]
     Active Substance: ADALIMUMAB
     Route: 058
  3. BETADERM [Suspect]
     Active Substance: BETAMETHASONE VALERATE
     Indication: Product used for unknown indication
     Route: 061

REACTIONS (25)
  - Limb injury [Unknown]
  - Eye disorder [Not Recovered/Not Resolved]
  - Constipation [Not Recovered/Not Resolved]
  - Nail bed bleeding [Not Recovered/Not Resolved]
  - Flatulence [Not Recovered/Not Resolved]
  - Hernia [Not Recovered/Not Resolved]
  - Skin ulcer [Not Recovered/Not Resolved]
  - Ulcer haemorrhage [Not Recovered/Not Resolved]
  - Chronic obstructive pulmonary disease [Not Recovered/Not Resolved]
  - Visual impairment [Not Recovered/Not Resolved]
  - Polyp [Not Recovered/Not Resolved]
  - Skin haemorrhage [Unknown]
  - Skin swelling [Unknown]
  - Malaise [Unknown]
  - Bone pain [Unknown]
  - Arthralgia [Unknown]
  - Pain in extremity [Unknown]
  - Pain [Unknown]
  - Nasopharyngitis [Unknown]
  - Nocturia [Unknown]
  - Urine odour abnormal [Unknown]
  - Inflammation [Unknown]
  - Musculoskeletal pain [Unknown]
  - Poor quality sleep [Unknown]
  - Rash macular [Unknown]

NARRATIVE: CASE EVENT DATE: 20190101
